FAERS Safety Report 8345259-3 (Version None)
Quarter: 2012Q2

REPORT INFORMATION
  Report Type: 
  Country: None (occurrence: None)
  Receive Date: 20120504
  Receipt Date: 20120419
  Transmission Date: 20120825
  Serious: Yes (Hospitalization)
  Sender: FDA-Public Use
  Company Number: TCI2012A01761

PATIENT

DRUGS (1)
  1. LANSOPRAZOLE [Suspect]

REACTIONS (1)
  - RHABDOMYOLYSIS [None]
